FAERS Safety Report 7487206-2 (Version None)
Quarter: 2011Q2

REPORT INFORMATION
  Report Type: 
  Country: None (occurrence: None)
  Receive Date: 20110518
  Receipt Date: 20110503
  Transmission Date: 20111010
  Serious: Yes (Life-Threatening, Hospitalization, Other)
  Sender: FDA-Public Use
  Company Number: US-BAYER-201031781NA

PATIENT
  Age: 24 Year
  Sex: Female
  Weight: 71.202 kg

DRUGS (11)
  1. YAZ [Suspect]
     Dates: start: 20090101, end: 20090315
  2. BUSPAR [Concomitant]
     Dosage: 15 MG, UNK
  3. TRIAMCINOLONE [Concomitant]
  4. ATIVAN [Concomitant]
  5. INDERAL [Concomitant]
     Indication: MIGRAINE PROPHYLAXIS
     Dosage: 20 MG, BID
     Route: 048
  6. LOTEMAX [Concomitant]
  7. YAZ [Suspect]
     Dosage: UNK
     Dates: start: 20081219, end: 20090301
  8. ZOLOFT [Concomitant]
     Indication: DEPRESSION
     Route: 048
  9. LORAZEPAM [Concomitant]
     Indication: ANXIETY
     Dosage: UNK UNK, PRN
     Route: 048
  10. TRIAMCINOLONE ACETONIDE [Concomitant]
  11. FLEXERIL [Concomitant]
     Dosage: 10 MG, UNK

REACTIONS (23)
  - PULMONARY EMBOLISM [None]
  - CONCUSSION [None]
  - FACIAL BONES FRACTURE [None]
  - DEPRESSION [None]
  - CARDIO-RESPIRATORY ARREST [None]
  - HYPOXIC-ISCHAEMIC ENCEPHALOPATHY [None]
  - COGNITIVE DISORDER [None]
  - ORTHOSTATIC HYPOTENSION [None]
  - MUSCLE SPASMS [None]
  - DYSPNOEA [None]
  - BLINDNESS CORTICAL [None]
  - SUICIDE ATTEMPT [None]
  - ATAXIA [None]
  - COMA [None]
  - SPEECH DISORDER [None]
  - AMNESIA [None]
  - PSYCHIATRIC SYMPTOM [None]
  - ANXIETY [None]
  - MEMORY IMPAIRMENT [None]
  - TIBIA FRACTURE [None]
  - TACHYCARDIA [None]
  - AUTONOMIC NERVOUS SYSTEM IMBALANCE [None]
  - TOOTH FRACTURE [None]
